FAERS Safety Report 4513223-8 (Version None)
Quarter: 2004Q4

REPORT INFORMATION
  Report Type: 
  Country: None (occurrence: None)
  Receive Date: 20041124
  Receipt Date: 20041112
  Transmission Date: 20050328
  Serious: Yes (Hospitalization)
  Sender: FDA-Public Use
  Company Number: 2004-122384-NL

PATIENT
  Age: 68 Year
  Sex: Male

DRUGS (10)
  1. ROCURONIUM BROMIDE [Suspect]
     Indication: ANAESTHESIA
     Dosage: 40 MG ONCE, INTRAVENOUS (NOS)
     Route: 042
     Dates: start: 20040722, end: 20040722
  2. NITROGLYCERIN [Suspect]
     Indication: CARDIAC DISORDER
     Dosage: NASAL
     Route: 045
     Dates: start: 20040722, end: 20040722
  3. ATROPINE SULFATE [Suspect]
     Indication: ANAESTHESIA
     Dosage: INTRAVENOUS (NOS)
     Route: 042
     Dates: start: 20040722, end: 20040722
  4. ADRENALIN IN OIL INJ [Suspect]
     Dosage: INTRAVENOUS (NOS)
     Route: 042
     Dates: start: 20040722, end: 20040722
  5. METOPROLOL TARTRATE [Suspect]
     Indication: CARDIAC DISORDER
     Dosage: INTRAVENOUS (NOS)
     Route: 042
     Dates: start: 20040722, end: 20040722
  6. PROPOFOL [Suspect]
     Indication: ANAESTHESIA
     Dosage: INTRVENOUS (NOS)
     Route: 042
     Dates: start: 20040722, end: 20040722
  7. ALFENTANIL HYDROCHLORIDE [Suspect]
     Indication: ANAESTHESIA
     Dosage: INTRAVENOUS (NOS)
     Route: 042
     Dates: start: 20040722, end: 20040722
  8. CORTICOSTEROIDS [Concomitant]
  9. IMMUNE GLOBULIN INTRAVENOUS (HUMAN) [Concomitant]
  10. ORAL TREATMENT FOR DIABETES [Concomitant]

REACTIONS (2)
  - MYOCARDIAL ISCHAEMIA [None]
  - VENTRICULAR FIBRILLATION [None]
